FAERS Safety Report 24187562 (Version 1)
Quarter: 2024Q3

REPORT INFORMATION
  Report Type: Spontaneous
  Country: CN (occurrence: CN)
  Receive Date: 20240808
  Receipt Date: 20240808
  Transmission Date: 20241016
  Serious: Yes (Other)
  Sender: RANBAXY
  Company Number: CN-SUN PHARMACEUTICAL INDUSTRIES LTD-2024R1-457123

PATIENT
  Age: 73 Year
  Sex: Female

DRUGS (2)
  1. CAPECITABINE [Suspect]
     Active Substance: CAPECITABINE
     Indication: Colorectal cancer
     Dosage: 1.5 GRAM, BID, ON DAYS 1 - 14
     Route: 048
     Dates: start: 202110, end: 202202
  2. OXALIPLATIN [Suspect]
     Active Substance: OXALIPLATIN
     Indication: Colorectal cancer
     Dosage: 190 MILLIGRAM, ON DAY 1
     Route: 065
     Dates: start: 202110, end: 202202

REACTIONS (1)
  - Acute myeloid leukaemia [Unknown]
